FAERS Safety Report 8004812-7 (Version None)
Quarter: 2011Q4

REPORT INFORMATION
  Report Type: 
  Country: None (occurrence: None)
  Receive Date: 20111223
  Receipt Date: 20111213
  Transmission Date: 20120403
  Serious: Yes (Other)
  Sender: FDA-Public Use
  Company Number: FR-BRISTOL-MYERS SQUIBB COMPANY-16295131

PATIENT
  Age: 80 Year
  Sex: Female

DRUGS (7)
  1. OMEPRAZOLE [Suspect]
     Dosage: MOPRAL 10 MG  1DF:1TABLET ENTERIC COATED TABLET MORE THAN 3 YEARS
     Route: 048
  2. ARTHROTEC [Suspect]
     Dosage: ARTOTEC 75 MG/0.2 MG  1DF=1FILM-COATED TABLET
     Route: 048
     Dates: end: 20110915
  3. METHOTREXATE [Suspect]
     Dosage: FOR MORE THAN 10 YEARS
     Route: 048
     Dates: end: 20110915
  4. IRBESARTAN AND HYDROCHLOROTHIAZIDE [Suspect]
     Dosage: FILM COATED TABS FOR MORE THAN 3 YEARS 1DF:1 TABLET
     Route: 048
     Dates: end: 20110915
  5. LORAZEPAM [Suspect]
     Dosage: IN THE EVNG
     Route: 048
  6. GLUCOVANCE [Suspect]
     Dosage: 1DF=1 TABS FILM COATED TABS MORE THAN 3 YEARS
     Route: 048
     Dates: end: 20110915
  7. ACETAMINOPHEN [Suspect]
     Dosage: DOLIPRANE  500MG
     Route: 048

REACTIONS (1)
  - HEPATIC CIRRHOSIS [None]
